FAERS Safety Report 5752891-X (Version None)
Quarter: 2008Q2

REPORT INFORMATION
  Report Type: 
  Country: None (occurrence: None)
  Receive Date: 20080529
  Receipt Date: 20071129
  Transmission Date: 20081010
  Serious: No
  Sender: FDA-Public Use
  Company Number: US-BOEHRINGER INGELHEIM GMBH, GERMANY-2006-BP-14578BP

PATIENT
  Sex: Female
  Weight: 76 kg

DRUGS (15)
  1. MIRAPEX [Suspect]
     Indication: PARKINSON'S DISEASE
     Route: 048
     Dates: start: 19970701, end: 20070719
  2. SINEMET [Concomitant]
     Indication: PARKINSON'S DISEASE
  3. SELEGILINE HCL [Concomitant]
  4. AMANTADINE HCL [Concomitant]
  5. BUPROPION SR [Concomitant]
  6. PROTONIX [Concomitant]
  7. TRIAMTERENE AND HYDROCHLOROTHIAZIDE [Concomitant]
  8. GOLYTELY SOLUTION [Concomitant]
  9. AMOXICILLIN [Concomitant]
  10. BEXTRA [Concomitant]
  11. CARBIDOPA AND LEVODOPA [Concomitant]
  12. RANITIDINE [Concomitant]
  13. ARTHROTEC [Concomitant]
  14. VIOXX [Concomitant]
  15. WELLBUTRIN [Concomitant]

REACTIONS (6)
  - ANXIETY [None]
  - COMPULSIVE SHOPPING [None]
  - DEPRESSION [None]
  - HYPERPHAGIA [None]
  - PATHOLOGICAL GAMBLING [None]
  - WEIGHT INCREASED [None]
